FAERS Safety Report 8847510 (Version 2)
Quarter: 2013Q2

REPORT INFORMATION
  Report Type: Spontaneous
  Country: CA (occurrence: CA)
  Receive Date: 20121018
  Receipt Date: 20130604
  Transmission Date: 20140414
  Serious: Yes (Disabling, Other)
  Sender: FDA-Public Use
  Company Number: CA-ELI_LILLY_AND_COMPANY-CA201210001777

PATIENT
  Age: 47 Year
  Sex: Female
  Weight: 97.3 kg

DRUGS (13)
  1. CYMBALTA [Suspect]
     Indication: NEUROPATHY PERIPHERAL
     Dosage: 30 MG, QD
     Route: 048
     Dates: start: 20111108, end: 20111121
  2. CYMBALTA [Suspect]
     Dosage: 30 MG, QOD
     Dates: start: 20111121
  3. LISINOPRIL [Concomitant]
     Indication: HYPERTENSION
     Dosage: 10 MG, UNK
  4. LISINOPRIL [Concomitant]
     Dosage: 20 MG, QD
     Dates: start: 20111121
  5. APO K [Concomitant]
     Dosage: 600 MG, QD
  6. BENADRYL [Concomitant]
  7. ELAVIL [Concomitant]
     Dosage: 10 MG, QD
  8. INDAPAMIDE [Concomitant]
     Dosage: 1.25 MG, QD
  9. KETOROLAC [Concomitant]
     Dosage: 10 MG, PRN
  10. MULTIVITAMINS [Concomitant]
  11. PANTOPRAZOLE [Concomitant]
     Dosage: 40 MG, QD
  12. RATIO-LENOLTEC NO 3 [Concomitant]
  13. ZOPICLONE [Concomitant]
     Dosage: 7.5 MG, PRN

REACTIONS (3)
  - Condition aggravated [Recovered/Resolved]
  - Hypertension [Recovered/Resolved]
  - Off label use [Unknown]
